FAERS Safety Report 8383909-6 (Version None)
Quarter: 2012Q2

REPORT INFORMATION
  Report Type: 
  Country: None (occurrence: None)
  Receive Date: 20120524
  Receipt Date: 20120521
  Transmission Date: 20120825
  Serious: Yes (Hospitalization)
  Sender: FDA-Public Use
  Company Number: FR-NAPPMUNDI-GBR-2012-0010670

PATIENT
  Age: 59 Year
  Sex: Male

DRUGS (2)
  1. OXYCODONE HCL [Suspect]
     Indication: PRODUCT USED FOR UNKNOWN INDICATION
     Dosage: UNK
     Route: 065
     Dates: start: 20111006, end: 20111011
  2. CRIZOTINIB [Suspect]
     Indication: NON-SMALL CELL LUNG CANCER
     Dosage: 250 MG, BID
     Route: 048
     Dates: start: 20110923, end: 20111010

REACTIONS (5)
  - CONFUSIONAL STATE [None]
  - CHEST PAIN [None]
  - DISEASE PROGRESSION [None]
  - VENOUS THROMBOSIS [None]
  - HAEMOPTYSIS [None]
